FAERS Safety Report 5115865-8 (Version None)
Quarter: 2006Q3

REPORT INFORMATION
  Report Type: 
  Country: None (occurrence: None)
  Receive Date: 20060927
  Receipt Date: 20060508
  Transmission Date: 20061208
  Serious: Yes (Life-Threatening, Hospitalization)
  Sender: FDA-Public Use
  Company Number: PHBS2006JP06926

PATIENT
  Age: 64 Year
  Sex: Male

DRUGS (9)
  1. NEORAL [Suspect]
     Indication: RENAL TRANSPLANT
     Dosage: 1675 MG, ONCE/SINGLE
     Route: 048
     Dates: start: 20060502, end: 20060502
  2. NEORAL [Suspect]
     Dosage: 125 MG/D
     Route: 048
     Dates: start: 20060501
  3. NEORAL [Suspect]
     Dosage: 125 MG/D
     Route: 048
     Dates: end: 20060501
  4. NEORAL [Suspect]
     Dosage: 75 MG/D
     Route: 048
     Dates: start: 20060508, end: 20060501
  5. CELLCEPT [Concomitant]
     Indication: RENAL TRANSPLANT
     Dosage: 12500 MG, ONCE/SINGLE
     Route: 048
     Dates: start: 20060502
  6. ARTIST [Concomitant]
     Dosage: 75 MG, ONCE/SINGLE
     Route: 048
     Dates: start: 20060502
  7. PROCYLIN [Concomitant]
     Dosage: UNKNOWN (OVERDOSE)
     Route: 048
     Dates: start: 20060502
  8. AMLODIN [Concomitant]
     Dosage: 100 MG, ONCE/SINGLE
     Route: 048
     Dates: start: 20060502
  9. MUCOSTA [Concomitant]
     Dosage: 5700 MG, ONCE/SINGLE
     Route: 048
     Dates: start: 20060502

REACTIONS (14)
  - ANURIA [None]
  - BLOOD PRESSURE DECREASED [None]
  - BODY TEMPERATURE DECREASED [None]
  - BONE MARROW FAILURE [None]
  - C-REACTIVE PROTEIN INCREASED [None]
  - DEPRESSED LEVEL OF CONSCIOUSNESS [None]
  - DRUG LEVEL INCREASED [None]
  - GASTRIC LAVAGE [None]
  - HAEMATOCRIT DECREASED [None]
  - INTENTIONAL OVERDOSE [None]
  - PUPILLARY LIGHT REFLEX TESTS ABNORMAL [None]
  - PYREXIA [None]
  - SUICIDE ATTEMPT [None]
  - VOMITING [None]
